FAERS Safety Report 7746919-5 (Version None)
Quarter: 2011Q3

REPORT INFORMATION
  Report Type: 
  Country: None (occurrence: None)
  Receive Date: 20110913
  Receipt Date: 20110830
  Transmission Date: 20111222
  Serious: Yes (Hospitalization, Other)
  Sender: FDA-Public Use
  Company Number: PHHY2011BR77207

PATIENT
  Sex: Female

DRUGS (4)
  1. EXFORGE [Suspect]
     Indication: HYPERTENSION
     Dosage: 1 DF, (320/10 MG) DAILY
     Route: 048
  2. ASPIRIN [Concomitant]
     Dosage: 1 DF, DAILY
     Route: 048
  3. SIMVASTATIN [Concomitant]
     Dosage: 1 DF, DAILY
     Route: 048
  4. ATENOLOL [Concomitant]
     Indication: HYPERTENSION
     Dosage: 1 DF, DAILY
     Route: 048

REACTIONS (2)
  - DIVERTICULITIS [None]
  - ASTHENIA [None]
